FAERS Safety Report 5872549-6 (Version None)
Quarter: 2008Q3

REPORT INFORMATION
  Report Type: 
  Country: None (occurrence: None)
  Receive Date: 20080902
  Receipt Date: 20080822
  Transmission Date: 20090109
  Serious: Yes (Death, Other)
  Sender: FDA-Public Use
  Company Number: WAES 0808USA05202

PATIENT
  Age: 64 Year
  Sex: Male

DRUGS (9)
  1. JANUVIA [Suspect]
     Indication: TYPE 2 DIABETES MELLITUS
     Dosage: 100 MG, DAILY, PO
     Route: 048
  2. ATROVENT [Concomitant]
  3. PRAVASTATIN [Concomitant]
  4. MICARDIS [Concomitant]
  5. SERETIDE [Concomitant]
  6. VENTOLIN [Concomitant]
  7. VENTOLIN [Concomitant]
  8. ASPIRIN [Concomitant]
  9. METFORMIN HCL [Concomitant]

REACTIONS (1)
  - CARDIAC ARREST [None]
